FAERS Safety Report 14874769 (Version 13)
Quarter: 2018Q4

REPORT INFORMATION
  Report Type: Spontaneous
  Country: DE (occurrence: DE)
  Receive Date: 20180510
  Receipt Date: 20181107
  Transmission Date: 20190204
  Serious: Yes (Hospitalization)
  Sender: FDA-Public Use
  Company Number: DE-009507513-1805DEU000169

PATIENT
  Age: 62 Year
  Sex: Female
  Weight: 45 kg

DRUGS (71)
  1. LACTULOSE. [Interacting]
     Active Substance: LACTULOSE
     Indication: PRODUCT USED FOR UNKNOWN INDICATION
     Dosage: 1 DF, QD, 1 MEASURING CUP
     Route: 048
  2. MAGNESIUM VERLA (MAGNESIUM CITRATE (+) MAGNESIUM GLUTAMATE (+) MAGNESI [Suspect]
     Active Substance: MAGNESIUM
     Dosage: 2 DF, QD
     Route: 048
  3. VIGANTOLETTEN [Suspect]
     Active Substance: CHOLECALCIFEROL
     Indication: PRODUCT USED FOR UNKNOWN INDICATION
     Dosage: 1 DF, QD
     Route: 048
  4. ACETAMINOPHEN. [Suspect]
     Active Substance: ACETAMINOPHEN
     Dosage: 1 DF, QD
     Route: 048
  5. SPIRIVA [Suspect]
     Active Substance: TIOTROPIUM BROMIDE MONOHYDRATE
     Indication: PRODUCT USED FOR UNKNOWN INDICATION
     Dosage: 18 UG, BID (1-0-1-0)
     Route: 055
  6. SPIRIVA [Suspect]
     Active Substance: TIOTROPIUM BROMIDE MONOHYDRATE
     Dosage: 2 DOSAGE FORM, QD
     Route: 055
  7. URSOFALK [Suspect]
     Active Substance: URSODIOL
     Dosage: 1000 MG (500 MG, BID)
     Route: 048
  8. MAGNESIUM CITRATE (+) MAGNESIUM OXIDE (+) POTASSIUM CITRATE (+) PYRIDO [Suspect]
     Active Substance: MAGNESIUM CITRATE\MAGNESIUM OXIDE\POTASSIUM CITRATE\PYRIDOXINE HYDROCHLORIDE
     Indication: PRODUCT USED FOR UNKNOWN INDICATION
     Dosage: 1 DOSAGE FORM, QD
     Route: 048
  9. MAGNESIUM CITRATE (+) MAGNESIUM OXIDE (+) POTASSIUM CITRATE (+) PYRIDO [Suspect]
     Active Substance: MAGNESIUM CITRATE\MAGNESIUM OXIDE\POTASSIUM CITRATE\PYRIDOXINE HYDROCHLORIDE
     Dosage: UNK UNK, BID
     Route: 048
  10. MAGNESIUM VERLA (MAGNESIUM CITRATE (+) MAGNESIUM GLUTAMATE (+) MAGNESI [Suspect]
     Active Substance: MAGNESIUM
     Indication: PRODUCT USED FOR UNKNOWN INDICATION
     Dosage: 2 DF, QD (2-0-0-0)
     Route: 048
  11. POTASSIUM CHLORIDE. [Suspect]
     Active Substance: POTASSIUM CHLORIDE
     Dosage: 100 MG, QD
     Route: 048
  12. ACETAMINOPHEN. [Suspect]
     Active Substance: ACETAMINOPHEN
     Dosage: 30 GTT, TID
     Route: 048
  13. SPIRIVA [Suspect]
     Active Substance: TIOTROPIUM BROMIDE MONOHYDRATE
     Dosage: 36 MICROGRAM, QD
     Route: 055
  14. DUROGESIC [Suspect]
     Active Substance: FENTANYL
     Indication: PRODUCT USED FOR UNKNOWN INDICATION
     Dosage: 50 UG,QD
     Route: 048
  15. NOVALGIN (ACETAMINOPHEN (+) CAFFEINE (+) PROPYPHENAZONE) [Suspect]
     Active Substance: ACETAMINOPHEN\CAFFEINE\PROPYPHENAZONE
     Dosage: 30 GTT, TID (30 TROPFEN, 1-1-1-0) (ALSO REPORTED AS 90 GTT, QD)
     Route: 048
  16. LEVOPAR PLUS [Suspect]
     Active Substance: BENSERAZIDE\LEVODOPA
     Indication: PRODUCT USED FOR UNKNOWN INDICATION
     Dosage: 100 MG, QD (1-0-2.5-0)
     Route: 048
  17. LEVOPAR PLUS [Suspect]
     Active Substance: BENSERAZIDE\LEVODOPA
     Dosage: 100 MG BID
     Route: 048
  18. ACETAMINOPHEN (+) PENTAZOCINE HYDROCHLORIDE [Suspect]
     Active Substance: ACETAMINOPHEN\PENTAZOCINE HYDROCHLORIDE
     Indication: PRODUCT USED FOR UNKNOWN INDICATION
     Dosage: 90 DOSAGE FORM, QD
     Route: 048
  19. ACETAMINOPHEN (+) PENTAZOCINE HYDROCHLORIDE [Suspect]
     Active Substance: ACETAMINOPHEN\PENTAZOCINE HYDROCHLORIDE
     Dosage: 30 GTT DROPS, TID
     Route: 048
  20. MAGNESIUM VERLA (MAGNESIUM CITRATE (+) MAGNESIUM GLUTAMATE (+) MAGNESI [Suspect]
     Active Substance: MAGNESIUM
     Dosage: 2 DF, QD
     Route: 048
  21. SPIRONOLACTONE. [Suspect]
     Active Substance: SPIRONOLACTONE
     Indication: PRODUCT USED FOR UNKNOWN INDICATION
     Dosage: 200 MG, BID
     Route: 048
  22. SPIRONOLACTONE. [Suspect]
     Active Substance: SPIRONOLACTONE
     Dosage: 100 MG, BID (2-0-0-0) (ALSO REPORTED AS 200 MG, QD)
     Route: 048
  23. VIGANTOLETTEN [Suspect]
     Active Substance: CHOLECALCIFEROL
     Dosage: 100 UNK, QD
     Route: 048
  24. MAGNESIUM CITRATE (+) MAGNESIUM OXIDE (+) POTASSIUM CITRATE (+) PYRIDO [Suspect]
     Active Substance: MAGNESIUM CITRATE\MAGNESIUM OXIDE\POTASSIUM CITRATE\PYRIDOXINE HYDROCHLORIDE
     Dosage: 2 DOSAGE FORM, QD
     Route: 048
  25. ACETAMINOPHEN (+) PENTAZOCINE HYDROC HLORIDE [Suspect]
     Active Substance: ACETAMINOPHEN\PENTAZOCINE HYDROCHLORIDE
     Dosage: 1 DOSAGE FORM, QD
     Route: 048
  26. IMUREK (AZATHIOPRINE) [Suspect]
     Active Substance: AZATHIOPRINE
     Indication: PRODUCT USED FOR UNKNOWN INDICATION
     Dosage: 50 MG, QD
     Route: 048
  27. LACTULOSE. [Interacting]
     Active Substance: LACTULOSE
     Dosage: 1 DF, QD
     Route: 048
  28. MAGNESIUM VERLA (MAGNESIUM CITRATE (+) MAGNESIUM GLUTAMATE (+) MAGNESI [Suspect]
     Active Substance: MAGNESIUM
     Dosage: 1 DF, QD
     Route: 048
  29. RAPAMUNE [Suspect]
     Active Substance: SIROLIMUS
     Indication: PRODUCT USED FOR UNKNOWN INDICATION
     Dosage: 1 MG,QD, (1-0-0-0)
     Route: 048
  30. KALINOR (POTASSIUM BICARBONATE/POTASSIUM CITRATE) [Suspect]
     Active Substance: POTASSIUM BICARBONATE\POTASSIUM CITRATE
     Dosage: 100 MG, QD (1-0-0-0)
     Route: 048
  31. LACTULOSE. [Interacting]
     Active Substance: LACTULOSE
     Dosage: 1 UNK, UNK
     Route: 048
  32. MAGNESIUM VERLA (MAGNESIUM CITRATE (+) MAGNESIUM GLUTAMATE (+) MAGNESI [Suspect]
     Active Substance: MAGNESIUM
     Dosage: UNK UNK, BID
     Route: 048
  33. SPIRONOLACTONE. [Suspect]
     Active Substance: SPIRONOLACTONE
     Dosage: 200 MG, BID
     Route: 048
  34. PANTOZOL [Suspect]
     Active Substance: PANTOPRAZOLE SODIUM
     Indication: PRODUCT USED FOR UNKNOWN INDICATION
     Dosage: 40 MG, QD (1-0-0-0)
     Route: 048
  35. FUROSEMIDE. [Interacting]
     Active Substance: FUROSEMIDE
     Indication: PRODUCT USED FOR UNKNOWN INDICATION
     Dosage: 160 MG, QD
     Route: 048
  36. VIGANTOLETTEN [Suspect]
     Active Substance: CHOLECALCIFEROL
     Dosage: 100 IU, QD (1-0-0-0)
     Route: 048
  37. MAGNESIUM (UNSPECIFIED) [Suspect]
     Active Substance: MAGNESIUM
     Indication: PRODUCT USED FOR UNKNOWN INDICATION
     Dosage: 2 DOSAGE FORM, BID
     Route: 048
  38. ALUMINUM HYDROXIDE (+) MAGNESIUM HYDROXIDE [Suspect]
     Active Substance: ALUMINUM HYDROXIDE\MAGNESIUM HYDROXIDE
     Indication: PRODUCT USED FOR UNKNOWN INDICATION
     Dosage: 200 DOSAGE FORM, QD
     Route: 048
  39. EZETROL [Suspect]
     Active Substance: EZETIMIBE
     Indication: PRODUCT USED FOR UNKNOWN INDICATION
     Dosage: 10 MG, QD (1-0-0-0)
     Route: 048
  40. SPIRONOLACTONE. [Suspect]
     Active Substance: SPIRONOLACTONE
     Dosage: 100 MG, BID
     Route: 048
  41. FUROSEMIDE. [Interacting]
     Active Substance: FUROSEMIDE
     Dosage: 40 MG, QD
     Route: 048
  42. ACETAMINOPHEN. [Suspect]
     Active Substance: ACETAMINOPHEN
     Indication: PRODUCT USED FOR UNKNOWN INDICATION
     Dosage: 90 DF, QD
     Route: 048
  43. PENTAZOCINE HYDROCHLORIDE [Suspect]
     Active Substance: PENTAZOCINE HYDROCHLORIDE
     Indication: PRODUCT USED FOR UNKNOWN INDICATION
     Dosage: 30 GTT, TID
     Route: 048
  44. PENTAZOCINE HYDROCHLORIDE [Suspect]
     Active Substance: PENTAZOCINE HYDROCHLORIDE
     Dosage: 90 DF, QD
     Route: 048
  45. PENTAZOCINE HYDROCHLORIDE [Suspect]
     Active Substance: PENTAZOCINE HYDROCHLORIDE
     Dosage: 1 DF, QD
     Route: 048
  46. FLUTICASONE PROPIONATE (+) SALMETEROL XINAFOATE [Suspect]
     Active Substance: FLUTICASONE PROPIONATE\SALMETEROL XINAFOATE
     Dosage: 2 UNK, UNK
     Route: 055
  47. MAGNESIUM CITRATE (+) MAGNESIUM OXIDE (+) POTASSIUM CITRATE (+) PYRIDO [Suspect]
     Active Substance: MAGNESIUM CITRATE\MAGNESIUM OXIDE\POTASSIUM CITRATE\PYRIDOXINE HYDROCHLORIDE
     Dosage: 2 DOSAGE FORM, QD
     Route: 048
  48. SIMVASTATIN. [Suspect]
     Active Substance: SIMVASTATIN
     Indication: PRODUCT USED FOR UNKNOWN INDICATION
     Dosage: 40 MG, QD (0-0-1-0)
     Route: 048
  49. SPIRONOLACTONE. [Suspect]
     Active Substance: SPIRONOLACTONE
     Dosage: 200 MG, BID
     Route: 048
  50. SPIRONOLACTONE. [Suspect]
     Active Substance: SPIRONOLACTONE
     Dosage: 2 DOSAGE FORM, QD
  51. POTASSIUM CHLORIDE. [Suspect]
     Active Substance: POTASSIUM CHLORIDE
     Indication: PRODUCT USED FOR UNKNOWN INDICATION
     Dosage: 100 MG, QD
     Route: 048
  52. RAPAMUNE [Suspect]
     Active Substance: SIROLIMUS
     Dosage: UNK UNK,UNK
     Route: 048
  53. FLUTICASONE PROPIONATE (+) SALMETEROL XINAFOATE [Suspect]
     Active Substance: FLUTICASONE PROPIONATE\SALMETEROL XINAFOATE
     Indication: PRODUCT USED FOR UNKNOWN INDICATION
     Dosage: 2 DF, QD (50/500 UG) (1-0-1-0)
     Route: 055
  54. FLUTICASONE PROPIONATE (+) SALMETEROL XINAFOATE [Suspect]
     Active Substance: FLUTICASONE PROPIONATE\SALMETEROL XINAFOATE
     Dosage: 1 DF, QD
     Route: 055
  55. LEVOPAR PLUS [Suspect]
     Active Substance: BENSERAZIDE\LEVODOPA
     Dosage: 1 DF, QD
     Route: 055
  56. KALINOR (POTASSIUM BICARBONATE/POTASSIUM CITRATE) [Suspect]
     Active Substance: POTASSIUM BICARBONATE\POTASSIUM CITRATE
     Indication: PRODUCT USED FOR UNKNOWN INDICATION
     Dosage: UNK
     Route: 048
  57. KALINOR (POTASSIUM BICARBONATE\POTASSIUM CITRATE) [Suspect]
     Active Substance: POTASSIUM BICARBONATE\POTASSIUM CITRATE
     Dosage: 100 MG, QD (1-0-0-0)
     Route: 048
  58. ESIDRIX [Suspect]
     Active Substance: HYDROCHLOROTHIAZIDE
     Indication: PRODUCT USED FOR UNKNOWN INDICATION
     Dosage: 25 MG, QD (1-0-0-0)
     Route: 048
  59. MAGNESIUM CITRATE (+) MAGNESI UM OXIDE (+) POTASSIUM CITRATE (+) PYRIDO [Suspect]
     Active Substance: MAGNESIUM CITRATE\MAGNESIUM OXIDE\POTASSIUM CITRATE\PYRIDOXINE HYDROCHLORIDE
     Dosage: 2 DOSAGE FORM, QD
     Route: 048
  60. MUCOSOLVAN [Interacting]
     Active Substance: AMBROXOL HYDROCHLORIDE
     Indication: PRODUCT USED FOR UNKNOWN INDICATION
     Dosage: 30 GTT DROPS, PRN ; AS NECESSARY
     Route: 048
  61. MUCOSOLVAN [Interacting]
     Active Substance: AMBROXOL HYDROCHLORIDE
     Dosage: UNK (REQUIREMENT, AS NECESSARY) (UNK [30 DROP (1/12 MILILITER) UNK)
     Route: 048
  62. MAGNESIUM VERLA (MAGNESIUM CITRATE (+) MAGNESIUM GLUTAMATE (+) MAGNESI [Suspect]
     Active Substance: MAGNESIUM
     Dosage: 2 DF, QD
     Route: 048
  63. SPIRONOLACTONE. [Suspect]
     Active Substance: SPIRONOLACTONE
     Dosage: 100 MG, QD
     Route: 048
  64. FUROSEMIDE. [Interacting]
     Active Substance: FUROSEMIDE
     Dosage: 40 MG, Q6H
     Route: 048
  65. FUROSEMIDE. [Interacting]
     Active Substance: FUROSEMIDE
     Dosage: 40 MG, QID
     Route: 048
  66. SPIRIVA [Suspect]
     Active Substance: TIOTROPIUM BROMIDE MONOHYDRATE
     Dosage: 18 UG, BID
     Route: 055
  67. DIPYRONE [Suspect]
     Active Substance: DIPYRONE
     Indication: PRODUCT USED FOR UNKNOWN INDICATION
     Dosage: 30 DROP, TID
     Route: 048
  68. NOVALGIN (ACETAMINOPHEN (+) CAFFEINE (+) PROPYPHENAZONE) [Suspect]
     Active Substance: ACETAMINOPHEN\CAFFEINE\PROPYPHENAZONE
     Indication: PRODUCT USED FOR UNKNOWN INDICATION
     Dosage: 30 GTT DROPS, Q8H
     Route: 048
  69. URSOFALK [Suspect]
     Active Substance: URSODIOL
     Indication: PRODUCT USED FOR UNKNOWN INDICATION
     Dosage: 500 MG, BID (1-0-1-0)
     Route: 048
  70. MAGNESIUM CITRATE (+) MAGNESIUM OXIDE (+) POTASSIUM CITRATE (+) PYRIDO [Suspect]
     Active Substance: MAGNESIUM CITRATE\MAGNESIUM OXIDE\POTASSIUM CITRATE\PYRIDOXINE HYDROCHLORIDE
     Dosage: 2 DOSAGE FORM, QD
     Route: 048
  71. MAGNESIUM CITRATE (+) MAGNESIUM OXIDE (+) POTASSIUM CITRATE (+) PYRIDO [Suspect]
     Active Substance: MAGNESIUM CITRATE\MAGNESIUM OXIDE\POTASSIUM CITRATE\PYRIDOXINE HYDROCHLORIDE
     Dosage: 2 UNK, QD
     Route: 048

REACTIONS (3)
  - Product prescribing error [Unknown]
  - General physical health deterioration [Unknown]
  - Drug interaction [Unknown]

NARRATIVE: CASE EVENT DATE: 20150916
